FAERS Safety Report 16958290 (Version 4)
Quarter: 2020Q1

REPORT INFORMATION
  Report Type: Report from Study
  Country: US (occurrence: US)
  Receive Date: 20191024
  Receipt Date: 20200303
  Transmission Date: 20200409
  Serious: Yes (Other)
  Sender: FDA-Public Use
  Company Number: US-MALLINCKRODT-T201903464

PATIENT
  Age: 59 Year
  Sex: Female
  Weight: 78 kg

DRUGS (17)
  1. REPOSITORY CORTICOTROPIN INJECTION [Suspect]
     Active Substance: CORTICOTROPIN
     Indication: RHEUMATOID ARTHRITIS
     Dosage: 40 UNITS/0.5 ML, THREE TIMES A WEEK (MONDAY, WEDNESDAY, FRIDAY)
     Route: 065
     Dates: start: 201903, end: 201903
  2. ENBREL [Suspect]
     Active Substance: ETANERCEPT
     Indication: PSORIATIC ARTHROPATHY
  3. REPOSITORY CORTICOTROPIN INJECTION [Suspect]
     Active Substance: CORTICOTROPIN
     Indication: PITUITARY-DEPENDENT CUSHING^S SYNDROME
     Dosage: 80 UNITS / 1 ML, 3 TIMES PER WK (MONDAY, WEDNESDAY AND FRIDAY)
     Route: 058
     Dates: start: 20190319
  4. REPOSITORY CORTICOTROPIN INJECTION [Suspect]
     Active Substance: CORTICOTROPIN
     Indication: ADDISON^S DISEASE
     Dosage: 80 UNITS/1ML, THREE TIMES A WEEK, (MONDAY, WEDNESDAY, FRIDAY)
     Route: 058
     Dates: start: 20190321, end: 2019
  5. REPOSITORY CORTICOTROPIN INJECTION [Suspect]
     Active Substance: CORTICOTROPIN
     Indication: PSORIATIC ARTHROPATHY
     Dosage: 80 UNITS/1ML, THREE TIMES A WEEK, (MONDAY, WEDNESDAY, FRIDAY)
     Route: 065
     Dates: start: 20190319, end: 201903
  6. PREDNISONE. [Suspect]
     Active Substance: PREDNISONE
     Dosage: 10 MILLIGRAM, UNK
     Route: 065
     Dates: start: 201808
  7. PREDNISONE. [Suspect]
     Active Substance: PREDNISONE
     Dosage: 6 MILLIGRAM, UNK
     Route: 065
  8. GAMMAGARD [Concomitant]
     Active Substance: HUMAN IMMUNOGLOBULIN G
     Indication: PRODUCT USED FOR UNKNOWN INDICATION
     Dosage: UNK
     Route: 065
  9. XOLAIR [Concomitant]
     Active Substance: OMALIZUMAB
     Indication: PRODUCT USED FOR UNKNOWN INDICATION
     Dosage: UNK
     Route: 065
  10. ENBREL [Suspect]
     Active Substance: ETANERCEPT
     Indication: OROPHARYNGEAL PAIN
     Dosage: UNK, (THURSDAY^S)
     Route: 065
     Dates: start: 201901
  11. ACYCLOVIR. [Concomitant]
     Active Substance: ACYCLOVIR
     Indication: PRODUCT USED FOR UNKNOWN INDICATION
     Dosage: UNK
     Route: 065
  12. REPOSITORY CORTICOTROPIN INJECTION [Suspect]
     Active Substance: CORTICOTROPIN
     Dosage: 80 UNITS/1ML, THREE TIMES A WEEK, (MONDAY, WEDNESDAY, FRIDAY)
     Route: 058
     Dates: start: 20190517
  13. REPOSITORY CORTICOTROPIN INJECTION [Suspect]
     Active Substance: CORTICOTROPIN
     Dosage: 40 UNITS/0.5 ML, THREE TIMES A WEEK, (MONDAY, WEDNESDAY, FRIDAY)
     Route: 058
     Dates: start: 2019, end: 20200116
  14. PREDNISONE. [Suspect]
     Active Substance: PREDNISONE
     Indication: CORTISOL DECREASED
     Dosage: UNK
     Route: 065
  15. PREDNISONE. [Suspect]
     Active Substance: PREDNISONE
     Dosage: 9 MILLIGRAM, QD
     Route: 065
     Dates: start: 2019
  16. NYSTATIN. [Concomitant]
     Active Substance: NYSTATIN
     Indication: PRODUCT USED FOR UNKNOWN INDICATION
     Dosage: UNK
     Route: 065
  17. IVIGLOB EX [Concomitant]
     Active Substance: HUMAN IMMUNOGLOBULIN G
     Indication: PRODUCT USED FOR UNKNOWN INDICATION
     Dosage: UNK
     Route: 065

REACTIONS (38)
  - Back pain [Unknown]
  - Cortisol increased [Not Recovered/Not Resolved]
  - Memory impairment [Not Recovered/Not Resolved]
  - Skin exfoliation [Unknown]
  - Pain [Not Recovered/Not Resolved]
  - Malaise [Unknown]
  - Wrong technique in product usage process [Unknown]
  - Eye disorder [Unknown]
  - Dry mouth [Not Recovered/Not Resolved]
  - Fatigue [Not Recovered/Not Resolved]
  - Eye operation [Unknown]
  - Lagophthalmos [Unknown]
  - Dizziness [Not Recovered/Not Resolved]
  - Weight decreased [Not Recovered/Not Resolved]
  - Sinusitis [Not Recovered/Not Resolved]
  - Underdose [Unknown]
  - Influenza like illness [Recovering/Resolving]
  - Hirsutism [Not Recovered/Not Resolved]
  - Anxiety [Unknown]
  - Hypotension [Recovering/Resolving]
  - Product dose omission [Not Recovered/Not Resolved]
  - Weight increased [Not Recovered/Not Resolved]
  - Neuralgia [Unknown]
  - Rash papular [Unknown]
  - Pain in extremity [Unknown]
  - Ear infection [Not Recovered/Not Resolved]
  - Product storage error [Unknown]
  - Oxygen saturation decreased [Recovering/Resolving]
  - Feeling jittery [Recovering/Resolving]
  - Heart rate increased [Unknown]
  - Diarrhoea [Recovering/Resolving]
  - Yawning [Not Recovered/Not Resolved]
  - Addison^s disease [Unknown]
  - Hypothermia [Unknown]
  - Injection site bruising [Not Recovered/Not Resolved]
  - Fungal infection [Unknown]
  - Stomatitis [Not Recovered/Not Resolved]
  - Extra dose administered [Unknown]

NARRATIVE: CASE EVENT DATE: 2019
